FAERS Safety Report 7513393-3 (Version None)
Quarter: 2011Q2

REPORT INFORMATION
  Report Type: 
  Country: None (occurrence: None)
  Receive Date: 20110531
  Receipt Date: 20110523
  Transmission Date: 20111010
  Serious: Yes (Death, Life-Threatening, Hospitalization, Other)
  Sender: FDA-Public Use
  Company Number: US-BRISTOL-MYERS SQUIBB COMPANY-13352794

PATIENT
  Age: 72 Year
  Sex: Male
  Weight: 85 kg

DRUGS (5)
  1. CETUXIMAB [Suspect]
     Indication: NON-SMALL CELL LUNG CANCER
     Dosage: 5TH INFUSION. LOAD DOSE (400 MG/M2, 850 MG) GIVEN ON 13-JAN-06.
     Route: 042
     Dates: start: 20060210, end: 20060210
  2. DOCETAXEL [Suspect]
     Indication: NON-SMALL CELL LUNG CANCER
     Dosage: 2ND DOSE. THERAPY START DATE 13-JAN-06 (160 MG).
     Route: 042
     Dates: start: 20060203, end: 20060203
  3. NAPROSYN [Concomitant]
     Dosage: 220 MG, 1-2 TABLETS TWICE PER DAY AS NEEDED.
     Route: 048
  4. CILOSTAZOL [Concomitant]
     Route: 048
  5. MULTI-VITAMINS [Concomitant]
     Dates: start: 20060214, end: 20060228

REACTIONS (7)
  - SEPSIS [None]
  - PNEUMONIA [None]
  - PLEURAL EFFUSION [None]
  - ACUTE RESPIRATORY DISTRESS SYNDROME [None]
  - MYOCARDITIS [None]
  - DEEP VEIN THROMBOSIS [None]
  - PNEUMONIA ASPIRATION [None]
